FAERS Safety Report 4334908-2 (Version None)
Quarter: 2004Q2

REPORT INFORMATION
  Report Type: 
  Country: None (occurrence: None)
  Receive Date: 20040408
  Receipt Date: 20031218
  Transmission Date: 20050107
  Serious: Yes (Other)
  Sender: FDA-Public Use
  Company Number: PHBS2003CH14321

PATIENT
  Age: 65 Year
  Sex: Female

DRUGS (1)
  1. ZELMAC [Suspect]
     Dosage: 6 MG, ONCE/SINGLE
     Route: 048

REACTIONS (3)
  - ANGINA PECTORIS [None]
  - CHEST PAIN [None]
  - DYSPNOEA [None]
